FAERS Safety Report 8755756 (Version 7)
Quarter: 2013Q1

REPORT INFORMATION
  Report Type: Spontaneous
  Country: US (occurrence: US)
  Receive Date: 20120827
  Receipt Date: 20130329
  Transmission Date: 20140127
  Serious: Yes (Hospitalization, Disabling, Other)
  Sender: FDA-Public Use
  Company Number: US-009507513-1208USA007489

PATIENT
  Sex: Female
  Weight: 58.96 kg

DRUGS (9)
  1. FOSAMAX [Suspect]
     Indication: OSTEOPOROSIS
     Dosage: 70 MG, QW
     Route: 048
     Dates: start: 20030822, end: 20080504
  2. FOSAMAX [Suspect]
     Indication: OSTEOPENIA
  3. FOSAMAX [Suspect]
     Indication: OSTEOPOROSIS
     Dosage: 70 MG, QW
     Route: 048
     Dates: start: 20080531, end: 201010
  4. FOSAMAX [Suspect]
     Dosage: UNK
  5. ATENOLOL [Concomitant]
     Indication: HYPERTENSION
     Dosage: 50 MG, QD
     Dates: start: 1992
  6. SYNTHROID [Concomitant]
     Indication: HYPOTHYROIDISM
     Dosage: 0.88 MG, QD
     Dates: start: 200010
  7. ORTHO-PREFEST [Concomitant]
     Dosage: UNK
  8. CALCIUM (UNSPECIFIED) [Concomitant]
     Dosage: UNK
     Dates: start: 2004
  9. LEVOTHYROXINE SODIUM [Concomitant]
     Indication: HYPOTHYROIDISM
     Dosage: UNK
     Dates: start: 200803

REACTIONS (31)
  - Femur fracture [Not Recovered/Not Resolved]
  - Low turnover osteopathy [Not Recovered/Not Resolved]
  - Back injury [Not Recovered/Not Resolved]
  - Face injury [Not Recovered/Not Resolved]
  - Concussion [Unknown]
  - Abasia [Not Recovered/Not Resolved]
  - Depression [Not Recovered/Not Resolved]
  - Open reduction of fracture [Unknown]
  - Intramedullary rod insertion [Unknown]
  - Intervertebral disc degeneration [Unknown]
  - Petit mal epilepsy [Unknown]
  - Blindness [Not Recovered/Not Resolved]
  - Injury [Unknown]
  - Altered state of consciousness [Unknown]
  - Radius fracture [Recovered/Resolved]
  - Ulna fracture [Unknown]
  - Balance disorder [Not Recovered/Not Resolved]
  - Pain in extremity [Not Recovered/Not Resolved]
  - Headache [Not Recovered/Not Resolved]
  - Device failure [Unknown]
  - Post concussion syndrome [Unknown]
  - Anxiety [Unknown]
  - Gait disturbance [Unknown]
  - Forearm fracture [Unknown]
  - Post-traumatic stress disorder [Not Recovered/Not Resolved]
  - Panic attack [Unknown]
  - Fall [Not Recovered/Not Resolved]
  - Face injury [Unknown]
  - Retinal haemorrhage [Unknown]
  - Device dislocation [Unknown]
  - Pain in extremity [Unknown]
